FAERS Safety Report 7753863-6 (Version None)
Quarter: 2011Q3

REPORT INFORMATION
  Report Type: 
  Country: None (occurrence: None)
  Receive Date: 20110915
  Receipt Date: 20110913
  Transmission Date: 20111222
  Serious: No
  Sender: FDA-Public Use
  Company Number: US-TEVA-299805USA

PATIENT
  Sex: Female

DRUGS (4)
  1. DULOXETINE HYDROCHLORIDE [Concomitant]
     Route: 048
  2. COPAXONE [Suspect]
     Indication: MULTIPLE SCLEROSIS
     Dosage: 20 MILLIGRAM;
     Route: 058
     Dates: start: 20060101
  3. VITAMINS NOS [Concomitant]
     Route: 048
  4. NUVIGIL [Concomitant]

REACTIONS (7)
  - FEELING COLD [None]
  - PAIN [None]
  - INJECTION SITE SCAR [None]
  - FEELING ABNORMAL [None]
  - FEELING HOT [None]
  - NEUROPATHY PERIPHERAL [None]
  - INJECTION SITE REACTION [None]
